FAERS Safety Report 14314869 (Version 1)
Quarter: 2017Q4

REPORT INFORMATION
  Report Type: Spontaneous
  Country: US (occurrence: US)
  Receive Date: 20171221
  Receipt Date: 20171221
  Transmission Date: 20180321
  Serious: Yes (Death, Hospitalization)
  Sender: FDA-Public Use
  Company Number: US-PFIZER INC-2017544366

PATIENT
  Age: 37 Year
  Sex: Male

DRUGS (1)
  1. TRIAZOLAM. [Suspect]
     Active Substance: TRIAZOLAM
     Dosage: UNK
     Route: 051

REACTIONS (2)
  - Toxicity to various agents [Fatal]
  - Accidental exposure to product [Fatal]

NARRATIVE: CASE EVENT DATE: 2016
